FAERS Safety Report 6447305-0 (Version None)
Quarter: 2009Q4

REPORT INFORMATION
  Report Type: 
  Country: None (occurrence: None)
  Receive Date: 20091119
  Receipt Date: 20091109
  Transmission Date: 20100525
  Serious: Yes (Other)
  Sender: FDA-Public Use
  Company Number: US-AMGEN-QUU373796

PATIENT
  Sex: Female

DRUGS (4)
  1. ENBREL [Suspect]
     Indication: RHEUMATOID ARTHRITIS
     Route: 058
     Dates: start: 20060621
  2. ENBREL [Suspect]
     Indication: SYSTEMIC LUPUS ERYTHEMATOSUS
  3. METHOTREXATE [Concomitant]
     Route: 048
  4. HUMIRA [Concomitant]

REACTIONS (4)
  - ARRHYTHMIA [None]
  - DRUG INEFFECTIVE [None]
  - EXTRASYSTOLES [None]
  - RHEUMATOID ARTHRITIS [None]
